FAERS Safety Report 17507103 (Version 2)
Quarter: 2021Q1

REPORT INFORMATION
  Report Type: Spontaneous
  Country: US (occurrence: US)
  Receive Date: 20200305
  Receipt Date: 20210227
  Transmission Date: 20210419
  Serious: No
  Sender: FDA-Public Use
  Company Number: US-ROCHE-2501054

PATIENT
  Sex: Female
  Weight: 85 kg

DRUGS (1)
  1. XOLAIR [Suspect]
     Active Substance: OMALIZUMAB
     Indication: ASTHMA
     Dosage: STRENGTH: 150 MG/ML?DATE OF LAST INJECTION DATE :24/JUN/2020?PREFILLED SYRINGE
     Route: 058
     Dates: start: 201808

REACTIONS (2)
  - Off label use [Unknown]
  - No adverse event [Unknown]
